FAERS Safety Report 4593937-4 (Version None)
Quarter: 2005Q1

REPORT INFORMATION
  Report Type: 
  Country: None (occurrence: None)
  Receive Date: 20050301
  Receipt Date: 20050222
  Transmission Date: 20050727
  Serious: Yes (Life-Threatening)
  Sender: FDA-Public Use
  Company Number: GB-MERCK-0502GBR00199

PATIENT
  Age: 68 Year
  Sex: Female

DRUGS (5)
  1. ZOCOR [Suspect]
     Indication: BLOOD CHOLESTEROL INCREASED
     Route: 048
     Dates: start: 20050202, end: 20050207
  2. ATENOLOL [Concomitant]
     Indication: HYPERTENSION
     Route: 048
     Dates: start: 20050201
  3. LISINOPRIL [Concomitant]
     Indication: HYPERTENSION
     Route: 048
     Dates: start: 20050126
  4. ASPIRIN [Concomitant]
     Indication: PAIN
     Route: 048
     Dates: start: 20050126
  5. NITROGLYCERIN [Concomitant]
     Indication: PAIN
     Route: 065
     Dates: start: 20050201

REACTIONS (1)
  - SWOLLEN TONGUE [None]
